FAERS Safety Report 13178809 (Version 4)
Quarter: 2017Q1

REPORT INFORMATION
  Report Type: Spontaneous
  Country: US (occurrence: US)
  Receive Date: 20170202
  Receipt Date: 20170327
  Transmission Date: 20170428
  Serious: Yes (Hospitalization, Other)
  Sender: FDA-Public Use
  Company Number: US-BRISTOL-MYERS SQUIBB COMPANY-BMS-2017-005038

PATIENT
  Age: 77 Year
  Sex: Female

DRUGS (1)
  1. SPRYCEL [Suspect]
     Active Substance: DASATINIB
     Indication: CHRONIC MYELOID LEUKAEMIA
     Dosage: 100 MG, QD
     Route: 048

REACTIONS (10)
  - Memory impairment [Recovering/Resolving]
  - Pleural effusion [Unknown]
  - Abdominal pain upper [Recovering/Resolving]
  - Dyspnoea [Unknown]
  - Balance disorder [Recovering/Resolving]
  - Pericardial effusion [Unknown]
  - Nasopharyngitis [Recovering/Resolving]
  - Joint injury [Recovering/Resolving]
  - Influenza [Unknown]
  - Fall [Recovering/Resolving]

NARRATIVE: CASE EVENT DATE: 20170105
